FAERS Safety Report 5589044-4 (Version None)
Quarter: 2007Q4

REPORT INFORMATION
  Report Type: 
  Country: None (occurrence: None)
  Receive Date: 20071212
  Receipt Date: 20070601
  Transmission Date: 20080405
  Serious: Yes (Other)
  Sender: FDA-Public Use
  Company Number: USA-2007-0027749

PATIENT
  Sex: Female

DRUGS (4)
  1. OXYCONTIN [Suspect]
     Indication: DRUG ABUSE
  2. METHADONE HCL [Suspect]
     Indication: DRUG ABUSE
  3. MARIJUANA (CANNABIS) [Suspect]
     Indication: DRUG ABUSE
  4. BENZODIAZAPEN [Suspect]
     Indication: DRUG ABUSER

REACTIONS (1)
  - SUBSTANCE ABUSE [None]
